FAERS Safety Report 5280653-9 (Version None)
Quarter: 2007Q1

REPORT INFORMATION
  Report Type: 
  Country: None (occurrence: None)
  Receive Date: 20070329
  Receipt Date: 20070317
  Transmission Date: 20070707
  Serious: Yes (Other)
  Sender: FDA-Public Use
  Company Number: US-PFIZER INC-2007013007

PATIENT
  Sex: Male
  Weight: 77.1 kg

DRUGS (9)
  1. CHANTIX [Suspect]
     Indication: EX-SMOKER
  2. VITAMIN CAP [Concomitant]
  3. GLUCOSAMINE [Concomitant]
  4. AVAPRO [Concomitant]
  5. ACETYLSALICYLIC ACID SRT [Concomitant]
  6. FLUOXETINE HCL [Concomitant]
  7. PROPECIA [Concomitant]
  8. LANTUS [Concomitant]
  9. HUMALOG [Concomitant]

REACTIONS (1)
  - BLOOD GLUCOSE INCREASED [None]
